FAERS Safety Report 7920881-4 (Version None)
Quarter: 2011Q4

REPORT INFORMATION
  Report Type: 
  Country: None (occurrence: None)
  Receive Date: 20111117
  Receipt Date: 20110913
  Transmission Date: 20120403
  Serious: No
  Sender: FDA-Public Use
  Company Number: US-GLAXOSMITHKLINE-A0944466A

PATIENT
  Age: 64 Year
  Sex: Female

DRUGS (8)
  1. METOPROLOL TARTRATE [Concomitant]
  2. VOTRIENT [Suspect]
     Indication: RENAL CANCER
     Dosage: 800MG PER DAY
     Route: 048
     Dates: start: 20110729
  3. NORVASC [Concomitant]
  4. HYDROCHLOROTHIAZIDE [Concomitant]
  5. CYMBALTA [Concomitant]
  6. ASPIRIN [Concomitant]
  7. ALLEGRA [Concomitant]
  8. NEXIUM [Concomitant]

REACTIONS (3)
  - FATIGUE [None]
  - ARTHRITIS [None]
  - BLOOD PRESSURE INCREASED [None]
